FAERS Safety Report 4299338-0 (Version None)
Quarter: 2004Q1

REPORT INFORMATION
  Report Type: 
  Country: None (occurrence: None)
  Receive Date: 20040217
  Receipt Date: 20040206
  Transmission Date: 20041129
  Serious: Yes (Hospitalization)
  Sender: FDA-Public Use
  Company Number: GR-SHR-04-020918

PATIENT
  Age: 55 Year
  Sex: Male

DRUGS (3)
  1. ULTRAVIST 300 [Suspect]
     Indication: UROGRAPHY
     Dosage: 50 ML, 1 DOSE, INTRAVENOUS
     Route: 042
     Dates: start: 20040203, end: 20040203
  2. CIPROXIN/SCH/(CIPROFLOXACIN HYDROCHLORIDE) [Concomitant]
  3. MEDROL [Concomitant]

REACTIONS (2)
  - MYOCARDIAL INFARCTION [None]
  - PROCEDURAL COMPLICATION [None]
